FAERS Safety Report 13896948 (Version 2)
Quarter: 2019Q2

REPORT INFORMATION
  Report Type: Report from Study
  Country: US (occurrence: US)
  Receive Date: 20170823
  Receipt Date: 20190513
  Transmission Date: 20190711
  Serious: Yes (Life-Threatening, Hospitalization, Other)
  Sender: FDA-Public Use
  Company Number: US-SA-2017SA016708

PATIENT
  Age: 53 Year
  Sex: Female

DRUGS (1)
  1. ALEMTUZUMAB [Suspect]
     Active Substance: ALEMTUZUMAB
     Dosage: 12 MG,QD
     Route: 041
     Dates: start: 20160815, end: 20160819

REACTIONS (11)
  - Bursa disorder [Unknown]
  - Myocardial infarction [Recovered/Resolved]
  - Pain [Not Recovered/Not Resolved]
  - Bedridden [Not Recovered/Not Resolved]
  - Weight bearing difficulty [Recovered/Resolved]
  - Blood pressure increased [Recovered/Resolved]
  - Pain in jaw [Recovered/Resolved]
  - Sciatica [Not Recovered/Not Resolved]
  - Pain [Unknown]
  - Chondropathy [Not Recovered/Not Resolved]
  - Chest pain [Recovered/Resolved]

NARRATIVE: CASE EVENT DATE: 20160821
